FAERS Safety Report 23956351 (Version 1)
Quarter: 2024Q2

REPORT INFORMATION
  Report Type: Spontaneous
  Country: AU (occurrence: AU)
  Receive Date: 20240610
  Receipt Date: 20240610
  Transmission Date: 20240716
  Serious: Yes (Other)
  Sender: FDA-Public Use
  Company Number: None

PATIENT
  Age: 80 Year
  Sex: Female

DRUGS (8)
  1. PIOGLITAZONE [Interacting]
     Active Substance: PIOGLITAZONE
     Indication: Product used for unknown indication
  2. ACETAMINOPHEN\CODEINE PHOSPHATE [Interacting]
     Active Substance: ACETAMINOPHEN\CODEINE PHOSPHATE
     Indication: Product used for unknown indication
  3. ASPIRIN [Interacting]
     Active Substance: ASPIRIN
     Indication: Product used for unknown indication
  4. CELECOXIB [Interacting]
     Active Substance: CELECOXIB
     Indication: Product used for unknown indication
  5. FUROSEMIDE [Interacting]
     Active Substance: FUROSEMIDE
     Indication: Product used for unknown indication
  6. IRON [Interacting]
     Active Substance: IRON
     Indication: Product used for unknown indication
  7. METFORMIN HYDROCHLORIDE [Interacting]
     Active Substance: METFORMIN HYDROCHLORIDE
     Indication: Product used for unknown indication
  8. PERINDOPRIL [Interacting]
     Active Substance: PERINDOPRIL
     Indication: Product used for unknown indication

REACTIONS (5)
  - Gastrointestinal haemorrhage [Unknown]
  - Constipation [Unknown]
  - Drug interaction [Unknown]
  - Fluid retention [Unknown]
  - Oedema [Unknown]
